FAERS Safety Report 5586811-8 (Version None)
Quarter: 2008Q1

REPORT INFORMATION
  Report Type: 
  Country: None (occurrence: None)
  Receive Date: 20080110
  Receipt Date: 20080104
  Transmission Date: 20080703
  Serious: Yes (Life-Threatening, Hospitalization)
  Sender: FDA-Public Use
  Company Number: DE-ROCHE-373299

PATIENT
  Age: 66 Year
  Sex: Male

DRUGS (25)
  1. DACLIZUMAB [Suspect]
     Route: 042
     Dates: end: 20040527
  2. DACLIZUMAB [Suspect]
     Route: 042
     Dates: start: 20040330
  3. DACLIZUMAB [Suspect]
     Route: 042
     Dates: start: 20040330
  4. MYCOPHENOLATE MOFETIL [Suspect]
     Route: 048
     Dates: start: 20040601, end: 20040705
  5. MYCOPHENOLATE MOFETIL [Suspect]
     Route: 048
     Dates: start: 20040330, end: 20040330
  6. MYCOPHENOLATE MOFETIL [Suspect]
     Route: 048
     Dates: start: 20040331
  7. MYCOPHENOLATE MOFETIL [Suspect]
     Route: 048
     Dates: end: 20050622
  8. MYCOPHENOLATE MOFETIL [Suspect]
     Dosage: DOSE REPORTED AS 2 X 0.5 MG
     Route: 048
     Dates: start: 20040330, end: 20060404
  9. MYCOPHENOLATE MOFETIL [Suspect]
     Route: 048
     Dates: start: 20070109
  10. SIROLIMUS [Suspect]
     Route: 048
     Dates: start: 20040526, end: 20040709
  11. SIROLIMUS [Suspect]
     Route: 048
     Dates: start: 20040330
  12. SIROLIMUS [Suspect]
     Route: 048
     Dates: start: 20040402
  13. SIROLIMUS [Suspect]
     Route: 048
     Dates: start: 20040409
  14. SIROLIMUS [Suspect]
     Route: 048
     Dates: start: 20040511
  15. SOLU-DECORTIN H [Suspect]
     Route: 048
     Dates: start: 20040527, end: 20040709
  16. SOLU-DECORTIN H [Suspect]
     Route: 048
     Dates: start: 20040330
  17. SOLU-DECORTIN H [Suspect]
     Route: 048
     Dates: start: 20040331
  18. SOLU-DECORTIN H [Suspect]
     Route: 048
     Dates: start: 20040401
  19. SOLU-DECORTIN H [Suspect]
     Route: 048
     Dates: start: 20040414
  20. SOLU-DECORTIN H [Suspect]
     Route: 048
     Dates: start: 20040427
  21. SOLU-DECORTIN H [Suspect]
     Route: 048
     Dates: start: 20040401
  22. SOLU-DECORTIN H [Suspect]
     Route: 048
     Dates: start: 20060816
  23. TACROLIMUS [Suspect]
     Route: 048
     Dates: start: 20040712
  24. TACROLIMUS [Suspect]
     Route: 048
     Dates: start: 20040712
  25. VALGANCICLOVIR HCL [Concomitant]
     Route: 048
     Dates: start: 20040402, end: 20040705

REACTIONS (6)
  - CYTOMEGALOVIRUS INFECTION [None]
  - LEUKOPENIA [None]
  - PNEUMONIA [None]
  - RENAL FAILURE [None]
  - URETHRAL STENOSIS [None]
  - URINARY RETENTION [None]
